FAERS Safety Report 7481549-4 (Version None)
Quarter: 2011Q2

REPORT INFORMATION
  Report Type: 
  Country: None (occurrence: None)
  Receive Date: 20110516
  Receipt Date: 20110506
  Transmission Date: 20111010
  Serious: Yes (Other)
  Sender: FDA-Public Use
  Company Number: US-ROCHE-581665

PATIENT
  Sex: Male
  Weight: 88.5 kg

DRUGS (8)
  1. ACCUTANE [Suspect]
     Dosage: ON 28 DEC 2001, ISOTRETINOING WAS CONTINUED.
     Route: 048
     Dates: start: 20011201
  2. CLARAVIS [Suspect]
     Indication: ACNE
     Route: 048
     Dates: start: 20030701, end: 20030731
  3. AMNESTEEM [Suspect]
     Indication: ACNE
     Route: 048
     Dates: start: 20030801, end: 20040901
  4. SOTRET [Suspect]
     Indication: ACNE
     Route: 048
     Dates: start: 20070831, end: 20071226
  5. ACCUTANE [Suspect]
     Indication: ACNE
     Route: 048
     Dates: start: 20010901, end: 20011001
  6. ACCUTANE [Suspect]
     Dosage: FREQUENCY INCREASED.
     Route: 048
     Dates: start: 20011003, end: 20011101
  7. ACCUTANE [Suspect]
     Route: 048
     Dates: start: 20020201, end: 20020501
  8. SOTRET [Suspect]
     Dosage: TAKEN ISOTRETINOIN 40 MG ALTERNATING WITH 80 MG
     Route: 048
     Dates: start: 20080125, end: 20080225

REACTIONS (9)
  - DEPRESSION [None]
  - INFLAMMATORY BOWEL DISEASE [None]
  - INTESTINAL OBSTRUCTION [None]
  - CROHN'S DISEASE [None]
  - ANXIETY [None]
  - ASTHENIA [None]
  - ILL-DEFINED DISORDER [None]
  - ARTHRALGIA [None]
  - ABDOMINAL DISCOMFORT [None]
